FAERS Safety Report 6606435-0 (Version None)
Quarter: 2010Q1

REPORT INFORMATION
  Report Type: 
  Country: None (occurrence: None)
  Receive Date: 20100226
  Receipt Date: 20100215
  Transmission Date: 20100710
  Serious: Yes (Death, Hospitalization, Other)
  Sender: FDA-Public Use
  Company Number: PHHY2009FR32731

PATIENT
  Sex: Female

DRUGS (10)
  1. CGP 57148B T35717+ [Suspect]
     Indication: CHRONIC MYELOID LEUKAEMIA
     Dosage: UNK
     Dates: end: 20090216
  2. STABLON [Concomitant]
     Dosage: 2 DF DAILY
  3. LASILIX [Concomitant]
     Dosage: 250 MG DAILY
  4. NITRODERM [Concomitant]
     Dosage: 10 MG, QD
  5. OGASTRO [Concomitant]
     Dosage: 1 DF DAILY
  6. SPRYCEL [Concomitant]
  7. KALEORID [Concomitant]
     Dosage: 3000 MG DAILY
  8. KARDEGIC [Concomitant]
     Dosage: 75 MG, QD
  9. ATARAX [Concomitant]
     Dosage: 25 MG, QD
  10. LACTEOL [Concomitant]
     Dosage: 3 DF DAILY

REACTIONS (6)
  - ASTHENIA [None]
  - CHRONIC MYELOID LEUKAEMIA [None]
  - GENERAL PHYSICAL HEALTH DETERIORATION [None]
  - MALAISE [None]
  - PALLOR [None]
  - RESPIRATORY DISTRESS [None]
